FAERS Safety Report 15069724 (Version 1)
Quarter: 2018Q2

REPORT INFORMATION
  Report Type: Spontaneous
  Country: US (occurrence: US)
  Receive Date: 20180626
  Receipt Date: 20180626
  Transmission Date: 20180711
  Serious: No
  Sender: FDA-Public Use
  Company Number: US-AMGEN-USASP2013068383

PATIENT
  Age: 60 Year
  Sex: Female

DRUGS (4)
  1. ZOFRAN [Concomitant]
     Active Substance: ONDANSETRON HYDROCHLORIDE
     Dosage: UNK
  2. PROTONIX [Concomitant]
     Active Substance: PANTOPRAZOLE SODIUM
     Dosage: UNK
  3. NEULASTA [Suspect]
     Active Substance: PEGFILGRASTIM
     Indication: PRODUCT USED FOR UNKNOWN INDICATION
     Dosage: UNK UNK, 24 HOURS AFTER CHEMO
     Route: 065
     Dates: start: 20130917
  4. TAXOTERE [Concomitant]
     Active Substance: DOCETAXEL
     Indication: MALIGNANT PERITONEAL NEOPLASM
     Dosage: UNK

REACTIONS (3)
  - Dizziness [Unknown]
  - Headache [Unknown]
  - Bone pain [Not Recovered/Not Resolved]

NARRATIVE: CASE EVENT DATE: 201309
